FAERS Safety Report 8653827 (Version 4)
Quarter: 2012Q4

REPORT INFORMATION
  Report Type: 
  Country: JP (occurrence: JP)
  Receive Date: 20120709
  Receipt Date: 20120911
  Transmission Date: 20130627
  Serious: Yes (Hospitalization)
  Sender: FDA-Public Use
  Company Number: PHHY2012JP057921

PATIENT
  Age: 70 Year
  Sex: Male

DRUGS (9)
  1. NEORAL [Suspect]
     Indication: INTERSTITIAL LUNG DISEASE
     Dosage: 150 mg, daily
     Route: 048
     Dates: start: 201107, end: 20120704
  2. NEORAL [Suspect]
     Dosage: 100 mg, daily
     Route: 048
     Dates: start: 20120705
  3. PREDONINE [Concomitant]
     Dosage: 15 mg, UNK
     Route: 048
     Dates: start: 201105
  4. ENDOXAN [Concomitant]
     Dosage: 50 mg, UNK
     Route: 048
     Dates: start: 201204
  5. MITIGLINIDE [Concomitant]
     Dosage: 15 mg, UNK
     Route: 048
  6. MIGLITOL [Concomitant]
     Dosage: 150 mg, UNK
     Route: 048
  7. LANTUS [Concomitant]
     Dosage: 10 IU, UNK
  8. WARFARIN [Concomitant]
     Dosage: 2.5 mg, UNK
     Route: 048
  9. VASOLAN [Concomitant]
     Dosage: 120 mg, UNK
     Route: 048

REACTIONS (6)
  - Liver disorder [Recovered/Resolved]
  - Alanine aminotransferase increased [Recovered/Resolved]
  - Blood lactate dehydrogenase increased [Recovered/Resolved]
  - Blood alkaline phosphatase increased [Recovered/Resolved]
  - Aspartate aminotransferase increased [Recovered/Resolved]
  - Gamma-glutamyltransferase increased [Recovered/Resolved]
